FAERS Safety Report 5308859-0 (Version None)
Quarter: 2007Q2

REPORT INFORMATION
  Report Type: 
  Country: None (occurrence: None)
  Receive Date: 20070426
  Receipt Date: 20070416
  Transmission Date: 20071010
  Serious: Yes (Other)
  Sender: FDA-Public Use
  Company Number: GB-PFIZER INC-2007031228

PATIENT
  Age: 50 Year
  Sex: Female

DRUGS (4)
  1. LYRICA [Suspect]
     Indication: ANXIETY
     Route: 048
     Dates: start: 20070215, end: 20070315
  2. DULOXETINE [Concomitant]
     Indication: DEPRESSION
     Route: 048
     Dates: start: 20061215
  3. OMEPRAZOLE [Concomitant]
     Indication: GASTROOESOPHAGEAL REFLUX DISEASE
  4. PERINDOPRIL [Concomitant]
     Indication: BLOOD PRESSURE INCREASED

REACTIONS (2)
  - LIP SWELLING [None]
  - SWELLING FACE [None]
